FAERS Safety Report 11776249 (Version 1)
Quarter: 2015Q4

REPORT INFORMATION
  Report Type: Report from Study
  Country: US (occurrence: US)
  Receive Date: 20151125
  Receipt Date: 20151125
  Transmission Date: 20160304
  Serious: Yes (Death, Other)
  Sender: FDA-Public Use
  Company Number: US-ROCHE-1247042

PATIENT
  Sex: Female

DRUGS (1)
  1. CAPECITABINE. [Suspect]
     Active Substance: CAPECITABINE
     Indication: BREAST CANCER METASTATIC
     Dosage: 1.25 G/M2 ON DAYS 1 TO 14
     Route: 048

REACTIONS (22)
  - Febrile neutropenia [Unknown]
  - Bone pain [Unknown]
  - Hypokalaemia [Unknown]
  - Leukopenia [Unknown]
  - Anaemia [Unknown]
  - Fatigue [Unknown]
  - Diarrhoea [Unknown]
  - Headache [Unknown]
  - Back pain [Unknown]
  - Palmar-plantar erythrodysaesthesia syndrome [Unknown]
  - Pyrexia [Unknown]
  - Dyspnoea [Unknown]
  - Alopecia [Unknown]
  - Nausea [Unknown]
  - Decreased appetite [Unknown]
  - Vomiting [Unknown]
  - Pancytopenia [Fatal]
  - Asthenia [Unknown]
  - Pneumonia [Fatal]
  - Neutropenia [Unknown]
  - Neuropathy peripheral [Unknown]
  - Alanine aminotransferase increased [Unknown]
